FAERS Safety Report 4866539-X (Version None)
Quarter: 2005Q4

REPORT INFORMATION
  Report Type: 
  Country: None (occurrence: None)
  Receive Date: 20051221
  Receipt Date: 20051206
  Transmission Date: 20060501
  Serious: Yes (Disabling, Other)
  Sender: FDA-Public Use
  Company Number: 2005164642

PATIENT
  Sex: Female
  Weight: 77.1115 kg

DRUGS (5)
  1. CELEBREX [Suspect]
     Indication: ARTHRITIS
     Dosage: 200 MG, INTERVAL:  EVERY DAY
  2. NEURONTIN [Suspect]
     Indication: PAIN
  3. AMITRIPTYLINE (AMITRIPTYLINE) [Suspect]
     Indication: SLEEP DISORDER
     Dosage: 200 MG (200 MG, 1 IN 1 D)
  4. LORTAB [Concomitant]
  5. NEXIUM [Concomitant]

REACTIONS (8)
  - ARTHRALGIA [None]
  - BACK PAIN [None]
  - DRUG INEFFECTIVE [None]
  - FEELING ABNORMAL [None]
  - INAPPROPRIATE SCHEDULE OF DRUG ADMINISTRATION [None]
  - INCREASED APPETITE [None]
  - TREATMENT NONCOMPLIANCE [None]
  - WALDENSTROM'S MACROGLOBULINAEMIA [None]
